FAERS Safety Report 16033474 (Version 1)
Quarter: 2019Q1

REPORT INFORMATION
  Report Type: Spontaneous
  Country: US (occurrence: US)
  Receive Date: 20190305
  Receipt Date: 20190305
  Transmission Date: 20190418
  Serious: No
  Sender: FDA-Public Use
  Company Number: US-PRINSTON PHARMACEUTICAL INC.-2018PRN01591

PATIENT
  Age: 61 Year
  Sex: Male
  Weight: 111.11 kg

DRUGS (5)
  1. LEVETIRACETAM. [Suspect]
     Active Substance: LEVETIRACETAM
     Indication: PARTIAL SEIZURES
     Dosage: 250 MG, 2X/DAY
     Route: 048
  2. LEVETIRACETAM. [Suspect]
     Active Substance: LEVETIRACETAM
     Dosage: 250 MG, 2X/DAY
     Route: 048
     Dates: start: 2017
  3. NIACIN. [Concomitant]
     Active Substance: NIACIN
     Dosage: UNK
  4. UNSPECIFIED BLOOD PRESSURE MEDICATION [Suspect]
     Active Substance: UNSPECIFIED INGREDIENT
  5. LEVETIRACETAM. [Suspect]
     Active Substance: LEVETIRACETAM
     Indication: PARTIAL SEIZURES
     Dosage: 1000 MG
     Route: 048
     Dates: end: 2017

REACTIONS (5)
  - Dizziness [Recovering/Resolving]
  - Fall [Recovered/Resolved]
  - Balance disorder [Recovered/Resolved]
  - Hypotension [Recovering/Resolving]
  - Product administration error [Not Recovered/Not Resolved]
